FAERS Safety Report 6235196-2 (Version None)
Quarter: 2009Q2

REPORT INFORMATION
  Report Type: 
  Country: None (occurrence: None)
  Receive Date: 20090618
  Receipt Date: 20090605
  Transmission Date: 20091009
  Serious: Yes (Other)
  Sender: FDA-Public Use
  Company Number: FR-JNJFOC-20090605175

PATIENT
  Age: 45 Year
  Sex: Female

DRUGS (2)
  1. IXPRIM [Suspect]
     Indication: PAIN
     Route: 048
  2. CELEBREX [Suspect]
     Indication: ARTHRITIS
     Route: 048

REACTIONS (4)
  - CONFUSIONAL STATE [None]
  - MIGRAINE [None]
  - SPEECH DISORDER [None]
  - TREMOR [None]
